FAERS Safety Report 11823824 (Version 1)
Quarter: 2015Q4

REPORT INFORMATION
  Report Type: Spontaneous
  Country: US (occurrence: US)
  Receive Date: 20151210
  Receipt Date: 20151210
  Transmission Date: 20160305
  Serious: No
  Sender: FDA-Public Use
  Company Number: US-HORIZON-RAV-0110-2015

PATIENT
  Age: 13 Year
  Sex: Female
  Weight: 32.7 kg

DRUGS (1)
  1. RAVICTI [Suspect]
     Active Substance: GLYCEROL PHENYLBUTYRATE
     Indication: UREA CYCLE ENZYME DEFICIENCY
     Dosage: 2.5 ML THREE TIMES DAILY
     Route: 048

REACTIONS (2)
  - Eating disorder [Unknown]
  - Circadian rhythm sleep disorder [Unknown]
